FAERS Safety Report 16075374 (Version 1)
Quarter: 2019Q1

REPORT INFORMATION
  Report Type: Spontaneous
  Country: US (occurrence: US)
  Receive Date: 20190315
  Receipt Date: 20190315
  Transmission Date: 20190418
  Serious: No
  Sender: FDA-Public Use
  Company Number: US-JNJFOC-20190216042

PATIENT
  Sex: Female

DRUGS (2)
  1. MENS ROGAINE EXTRA STRENGTH [Suspect]
     Active Substance: MINOXIDIL
     Route: 061
  2. MENS ROGAINE EXTRA STRENGTH [Suspect]
     Active Substance: MINOXIDIL
     Indication: ALOPECIA
     Route: 061
     Dates: start: 20190209

REACTIONS (6)
  - Hair texture abnormal [Recovered/Resolved]
  - Product use issue [Unknown]
  - Intentional product misuse [Unknown]
  - Product formulation issue [Unknown]
  - Product use in unapproved indication [Unknown]
  - Hair disorder [Recovered/Resolved]

NARRATIVE: CASE EVENT DATE: 201902
